FAERS Safety Report 10984159 (Version 3)
Quarter: 2015Q3

REPORT INFORMATION
  Report Type: Spontaneous
  Country: JP (occurrence: JP)
  Receive Date: 20150403
  Receipt Date: 20150910
  Transmission Date: 20151125
  Serious: Yes (Death)
  Sender: FDA-Public Use
  Company Number: JP-MALLINCKRODT-T201501913

PATIENT
  Age: 36 Year
  Sex: Male
  Weight: 62 kg

DRUGS (32)
  1. METHADONE [Suspect]
     Active Substance: METHADONE HYDROCHLORIDE
     Dosage: 30 MG (90 MG DAILY DOSE)
     Route: 048
     Dates: start: 20141216, end: 20150107
  2. NAIXAN [Concomitant]
     Active Substance: NAPROXEN SODIUM
     Dosage: 600 MG
     Route: 048
     Dates: end: 20150210
  3. CYMBALTA [Concomitant]
     Active Substance: DULOXETINE HYDROCHLORIDE
     Dosage: 20 MG
     Route: 048
     Dates: start: 20141212, end: 20141213
  4. XYLOCAINE [Concomitant]
     Active Substance: LIDOCAINE HYDROCHLORIDE
     Dosage: 300 MG
     Route: 051
     Dates: start: 20141212, end: 20141214
  5. CALCIUM LACTATE [Concomitant]
     Active Substance: CALCIUM LACTATE
     Dosage: 3 G
     Route: 048
     Dates: start: 20150123, end: 20150210
  6. P GUARD [Concomitant]
     Active Substance: MORPHINE SULFATE
     Dosage: 60 MG
     Route: 048
     Dates: start: 20150129, end: 20150203
  7. CALONAL [Concomitant]
     Active Substance: ACETAMINOPHEN
     Dosage: 1200 MG
     Route: 048
     Dates: end: 20150210
  8. LANSOPRAZOLE. [Concomitant]
     Active Substance: LANSOPRAZOLE
     Dosage: 15 MG
     Route: 048
     Dates: end: 20150130
  9. CYMBALTA [Concomitant]
     Active Substance: DULOXETINE HYDROCHLORIDE
     Dosage: 40 MG
     Route: 048
     Dates: end: 20141211
  10. ROPION [Concomitant]
     Active Substance: FLURBIPROFEN AXETIL
     Dosage: 100 MG
     Route: 051
     Dates: start: 20150108, end: 20150210
  11. CEFAZOLIN SODIUM. [Concomitant]
     Active Substance: CEFAZOLIN SODIUM
     Dosage: 4 G
     Route: 051
     Dates: start: 20150129, end: 20150130
  12. METHADONE [Suspect]
     Active Substance: METHADONE HYDROCHLORIDE
     Indication: CANCER PAIN
     Dosage: 15 MG (45 MG DAILY DOSE)
     Route: 048
     Dates: start: 20141209, end: 20141215
  13. LYRICA [Concomitant]
     Active Substance: PREGABALIN
     Dosage: 225 MG
     Route: 048
     Dates: end: 20150210
  14. DECADRON [Concomitant]
     Active Substance: DEXAMETHASONE
     Dosage: 8 MG
     Route: 048
     Dates: end: 20150210
  15. BAKTAR [Concomitant]
     Active Substance: SULFAMETHOXAZOLE\TRIMETHOPRIM
     Dosage: 3 DF
     Route: 048
     Dates: start: 20141220, end: 20150207
  16. FRESMIN S [Concomitant]
     Active Substance: HYDROXOCOBALAMIN
  17. ONETAXOTERE [Concomitant]
     Active Substance: DOCETAXEL
     Dosage: 50 MG
     Route: 051
     Dates: start: 20150108, end: 20150120
  18. RANITIDINE [Concomitant]
     Active Substance: RANITIDINE\RANITIDINE HYDROCHLORIDE
     Dosage: 50 MG
     Route: 051
     Dates: start: 20150108, end: 20150120
  19. CALCIUM CHLORIDE. [Concomitant]
     Active Substance: CALCIUM CHLORIDE
     Dosage: 7.2 MEQ
     Route: 051
     Dates: start: 20150206, end: 201502
  20. MORPHINE HYDROCHLORIDE [Concomitant]
     Active Substance: MORPHINE HYDROCHLORIDE
     Dosage: 19 MG, PRN
     Route: 051
     Dates: start: 20141208
  21. FRAGMIN [Concomitant]
     Active Substance: DALTEPARIN SODIUM
     Dosage: 5000 IU
     Route: 051
     Dates: start: 20150107
  22. OXINORM [Concomitant]
     Active Substance: OXYCODONE HYDROCHLORIDE
     Dosage: 80 - 100 MG, PRN
     Route: 048
  23. XYLOCAINE [Concomitant]
     Active Substance: LIDOCAINE HYDROCHLORIDE
     Dosage: 600 MG
     Route: 051
     Dates: end: 20141211
  24. MAXIPIME [Concomitant]
     Active Substance: CEFEPIME HYDROCHLORIDE
     Dosage: 2 G
     Route: 051
     Dates: start: 20150123, end: 20150128
  25. ABSTRAL [Concomitant]
     Active Substance: FENTANYL CITRATE
     Dosage: 100 MCG, PRN
     Route: 060
     Dates: start: 20150203, end: 20150203
  26. METHADONE [Suspect]
     Active Substance: METHADONE HYDROCHLORIDE
     Dosage: 40 MG (120 MG DAILY DOSE)
     Route: 048
     Dates: start: 20150108, end: 20150210
  27. MAGMITT [Concomitant]
     Active Substance: MAGNESIUM OXIDE
     Dosage: 990 MG
     Route: 048
     Dates: end: 20150210
  28. CHLOR-TRIMETON [Concomitant]
     Active Substance: CHLORPHENIRAMINE MALEATE
     Dosage: 10 MG
     Route: 051
     Dates: start: 20150108, end: 20150120
  29. ABSTRAL [Concomitant]
     Active Substance: FENTANYL CITRATE
     Dosage: 200 MCG, PRN
     Route: 060
     Dates: start: 20150204, end: 20150204
  30. CALONAL [Concomitant]
     Active Substance: ACETAMINOPHEN
     Dosage: 1800 MG
     Dates: start: 20150108
  31. VANCOMYCIN [Concomitant]
     Active Substance: VANCOMYCIN
     Dosage: 2 G
     Route: 051
     Dates: start: 20150126, end: 20150206
  32. ABSTRAL [Concomitant]
     Active Substance: FENTANYL CITRATE
     Dosage: 800 MCG, PRN
     Route: 060

REACTIONS (3)
  - Gastric cancer [Fatal]
  - Pneumonia [Recovered/Resolved]
  - Hypocalcaemia [Not Recovered/Not Resolved]

NARRATIVE: CASE EVENT DATE: 20150123
